FAERS Safety Report 7131958-8 (Version None)
Quarter: 2010Q4

REPORT INFORMATION
  Report Type: 
  Country: None (occurrence: None)
  Receive Date: 20101130
  Receipt Date: 20101130
  Transmission Date: 20110411
  Serious: No
  Sender: FDA-Public Use
  Company Number: None

PATIENT
  Age: 80 Year
  Sex: Female
  Weight: 69.4911 kg

DRUGS (5)
  1. CARBOPLATIN [Suspect]
     Dosage: 270MG Q 3WKS IV
     Route: 042
     Dates: start: 20101129
  2. TAXOL [Concomitant]
  3. ALOXI [Concomitant]
  4. DECADRON [Concomitant]
  5. TAGAMET [Concomitant]

REACTIONS (3)
  - ERYTHEMA [None]
  - FEELING HOT [None]
  - NAUSEA [None]
